FAERS Safety Report 9349364 (Version 1)
Quarter: 2013Q2

REPORT INFORMATION
  Report Type: Spontaneous
  Country: TR (occurrence: TR)
  Receive Date: 20130614
  Receipt Date: 20130614
  Transmission Date: 20140414
  Serious: Yes (Life-Threatening, Hospitalization, Other)
  Sender: FDA-Public Use
  Company Number: TR-PFIZER INC-2006135901

PATIENT
  Age: 3 Day
  Sex: Female
  Weight: 1.15 kg

DRUGS (2)
  1. IBUPROFEN [Suspect]
     Indication: PATENT DUCTUS ARTERIOSUS
     Dosage: 5.75 MG, 1X/DAY
     Route: 048
     Dates: start: 20020812, end: 20020813
  2. IBUPROFEN [Suspect]
     Indication: PROPHYLAXIS
     Dosage: 11.5 MG, UNK
     Route: 048
     Dates: start: 20020811, end: 20020811

REACTIONS (1)
  - Intestinal perforation [Recovered/Resolved]
